FAERS Safety Report 7814999-4 (Version None)
Quarter: 2011Q4

REPORT INFORMATION
  Report Type: 
  Country: None (occurrence: None)
  Receive Date: 20111014
  Receipt Date: 20110224
  Transmission Date: 20120403
  Serious: Yes (Life-Threatening)
  Sender: FDA-Public Use
  Company Number: GB-GLAXOSMITHKLINE-B0703320A

PATIENT
  Sex: Male
  Weight: 82 kg

DRUGS (3)
  1. MELPHALAN HYDROCHLORIDE [Suspect]
     Indication: MULTIPLE MYELOMA
     Dosage: 18MG PER DAY
     Route: 048
     Dates: start: 20090204, end: 20090808
  2. PREDNISONE [Suspect]
     Indication: MULTIPLE MYELOMA
     Dosage: 175MG PER DAY
     Dates: start: 20090204, end: 20090808
  3. THALIDOMIDE [Suspect]
     Indication: MULTIPLE MYELOMA
     Dosage: 100MG PER DAY
     Route: 048
     Dates: start: 20090204, end: 20090916

REACTIONS (1)
  - ACUTE MYELOID LEUKAEMIA [None]
